FAERS Safety Report 15297446 (Version 2)
Quarter: 2018Q3

REPORT INFORMATION
  Report Type: Report from Study
  Country: US (occurrence: US)
  Receive Date: 20180820
  Receipt Date: 20180910
  Transmission Date: 20181010
  Serious: Yes (Other)
  Sender: FDA-Public Use
  Company Number: US-BAYER-2018-116480

PATIENT
  Age: 67 Year
  Sex: Male

DRUGS (2)
  1. STIVARGA [Suspect]
     Active Substance: REGORAFENIB
     Indication: COLORECTAL CANCER
     Dosage: 80 MG, QD FOR 21 DAYS ON 7 DAYS OFF
     Route: 048
     Dates: start: 20180612
  2. STIVARGA [Suspect]
     Active Substance: REGORAFENIB
     Indication: COLORECTAL CANCER
     Dosage: 40 MG DAILY (21 DAYS ON/7 DAYS OFF)
     Route: 048
     Dates: start: 20180801

REACTIONS (30)
  - Nausea [None]
  - Fatigue [None]
  - Weight decreased [None]
  - Constipation [None]
  - Headache [None]
  - Loss of personal independence in daily activities [None]
  - Chest discomfort [Recovering/Resolving]
  - Fatigue [None]
  - Blood sodium decreased [Recovered/Resolved]
  - Seizure [Recovered/Resolved]
  - Off label use [None]
  - Abdominal pain upper [Recovering/Resolving]
  - Dysphonia [None]
  - Abdominal pain upper [Not Recovered/Not Resolved]
  - Abdominal pain upper [None]
  - Nausea [None]
  - Headache [Recovering/Resolving]
  - Early satiety [None]
  - Therapeutic response unexpected [None]
  - Decreased appetite [None]
  - Disorientation [None]
  - Muscle twitching [None]
  - Carcinoembryonic antigen increased [Not Recovered/Not Resolved]
  - Decreased appetite [None]
  - Abdominal pain upper [None]
  - Orthopnoea [None]
  - Back pain [None]
  - Muscle twitching [None]
  - Vision blurred [Recovering/Resolving]
  - Food refusal [None]

NARRATIVE: CASE EVENT DATE: 2018
